FAERS Safety Report 5527523-6 (Version None)
Quarter: 2007Q4

REPORT INFORMATION
  Report Type: 
  Country: None (occurrence: None)
  Receive Date: 20071121
  Receipt Date: 20071108
  Transmission Date: 20080405
  Serious: Yes (Other)
  Sender: FDA-Public Use
  Company Number: B0496005A

PATIENT
  Age: 38 Year
  Sex: Male

DRUGS (12)
  1. ZIDOVUDINE [Suspect]
     Indication: HIV INFECTION
  2. LAMIVUDINE                                  (FORMULATION UNKNOWN) (GEN [Suspect]
     Indication: HIV INFECTION
  3. TENOFOVIR                            (FORMULATION UNKNOWN) (TENOFOVIR) [Suspect]
     Indication: HIV INFECTION
  4. LOPINAVIR                                     (FORMULATION UNKNOWN) (L [Suspect]
     Indication: HIV INFECTION
  5. RITONAVIR                                  (FORMULATION UNKNOWN) (RITO [Suspect]
     Indication: HIV INFECTION
  6. NORTRIPTYLINE HCL [Concomitant]
  7. BUPROPION HYDROCHLORIDE [Concomitant]
  8. OXYCODONE HCL [Concomitant]
  9. WARFARIN SODIUM [Concomitant]
  10. GABAPENTIN [Concomitant]
  11. ACYCLOVIR [Concomitant]
  12. COTRIM [Concomitant]

REACTIONS (4)
  - ANTI-HBC IGG ANTIBODY POSITIVE [None]
  - FATIGUE [None]
  - HEPATIC STEATOSIS [None]
  - HYPERTRIGLYCERIDAEMIA [None]
